FAERS Safety Report 25170331 (Version 3)
Quarter: 2025Q3

REPORT INFORMATION
  Report Type: Spontaneous
  Country: EU (occurrence: EU)
  Receive Date: 20250408
  Receipt Date: 20250707
  Transmission Date: 20251021
  Serious: No
  Sender: ALKEM
  Company Number: EU-ALKEM LABORATORIES LIMITED-FR-ALKEM-2024-26090

PATIENT
  Age: 73 Year
  Sex: Female

DRUGS (15)
  1. DRONABINOL [Suspect]
     Active Substance: DRONABINOL
     Indication: Central pain syndrome
     Dosage: 2.5 MILLIGRAM, BID (SOFT CAPSULE MOLLE) (MARINOL)
     Route: 065
     Dates: start: 20241104
  2. DRONABINOL [Suspect]
     Active Substance: DRONABINOL
     Dosage: 5 MILLIGRAM, BID (SOFT CAPSULE MOLLE) (4 SOFT CAPSULES IN TWO INTAKES PER DAY)
     Route: 065
  3. DRONABINOL [Suspect]
     Active Substance: DRONABINOL
     Dosage: 5 MILLIGRAM, BID (SOFT CAPSULE MOLLE) (4 SOFT CAPSULES IN TWO INTAKES PER DAY)
     Route: 065
  4. DRONABINOL [Suspect]
     Active Substance: DRONABINOL
     Dosage: 2.5 MILLIGRAM, TID (CAPSULE MOLLE) (IN THREE INTAKES DAILY)
     Route: 065
  5. DRONABINOL [Suspect]
     Active Substance: DRONABINOL
     Dosage: 5 MILLIGRAM, BID (TWICE DAILY) (2.5 MG, SOFT CAPSULE 5 MG IN THE MORNING AND 5 MG IN THE EVENING)
     Route: 065
  6. LERCANIDIPINE [Concomitant]
     Active Substance: LERCANIDIPINE
     Indication: Hypertension
     Dosage: 10 MILLIGRAM, OD (IN THE MORNING)
     Route: 065
  7. BROMAZEPAM [Concomitant]
     Active Substance: BROMAZEPAM
     Indication: Product used for unknown indication
     Dosage: 1 DOSAGE FORM, QD (1/4-1/4-1/2 TABLET IN THE EVENING)
     Route: 065
  8. LYRICA [Concomitant]
     Active Substance: PREGABALIN
     Indication: Neuralgia
     Dosage: 575 MILLIGRAM, QD (275 MILLIGRAM IN THE MORNING AND 300 MILLIGRAM IN THE EVENING)
     Route: 065
     Dates: start: 20211101
  9. LYRICA [Concomitant]
     Active Substance: PREGABALIN
     Dosage: 300 MILLIGRAM, BID
     Route: 048
  10. NAPROXEN [Concomitant]
     Active Substance: NAPROXEN
     Indication: Product used for unknown indication
     Dosage: 550 MILLIGRAM, BID
     Route: 065
     Dates: start: 20230101
  11. ACETAMINOPHEN [Concomitant]
     Active Substance: ACETAMINOPHEN
     Indication: Pain
     Dosage: 100 MILLIGRAM, QD
     Route: 065
  12. RAMIPRIL [Concomitant]
     Active Substance: RAMIPRIL
     Indication: Hypertension
     Dosage: 2.5 MILLIGRAM, BID
     Route: 065
  13. TRAMADOL [Concomitant]
     Active Substance: TRAMADOL
     Indication: Pain
     Dosage: 300 MILLIGRAM, QD (100 MILLIGRAM IN 3 INTAKES A DAY)
     Route: 065
     Dates: start: 20211101
  14. TRAMADOL [Concomitant]
     Active Substance: TRAMADOL
     Dosage: 150 MILLIGRAM, QD
     Route: 065
  15. TRAMADOL [Concomitant]
     Active Substance: TRAMADOL
     Dosage: 50 MILLIGRAM, BID
     Route: 048

REACTIONS (11)
  - Dysmetria [Not Recovered/Not Resolved]
  - Vision blurred [Not Recovered/Not Resolved]
  - Tremor [Not Recovered/Not Resolved]
  - Feeling drunk [Not Recovered/Not Resolved]
  - Cognitive disorder [Unknown]
  - Conjunctival hyperaemia [Not Recovered/Not Resolved]
  - Systolic hypertension [Recovered/Resolved]
  - Confusional state [Recovered/Resolved]
  - Off label use [Unknown]
  - Product prescribing issue [Unknown]
  - Therapeutic response decreased [Unknown]

NARRATIVE: CASE EVENT DATE: 20241104
